FAERS Safety Report 5170447-7 (Version None)
Quarter: 2006Q4

REPORT INFORMATION
  Report Type: 
  Country: None (occurrence: None)
  Receive Date: 20061212
  Receipt Date: 20061207
  Transmission Date: 20070319
  Serious: Yes (Other)
  Sender: FDA-Public Use
  Company Number: DE-BOEHRINGER INGELHEIM GMBH, GERMANY-2006-DE-06545GD

PATIENT
  Age: 27 Year
  Sex: Male

DRUGS (3)
  1. ACETAMINOPHEN [Suspect]
     Route: 048
  2. IBUPROFEN [Suspect]
  3. DICLOFENAC SODIUM [Suspect]

REACTIONS (7)
  - DRUG ABUSER [None]
  - HEPATOCELLULAR DAMAGE [None]
  - INTENTIONAL OVERDOSE [None]
  - NEPHROPATHY TOXIC [None]
  - OVERDOSE [None]
  - RENAL FAILURE [None]
  - SUICIDE ATTEMPT [None]
